FAERS Safety Report 24250621 (Version 1)
Quarter: 2024Q3

REPORT INFORMATION
  Report Type: Spontaneous
  Country: US (occurrence: None)
  Receive Date: 20240824
  Receipt Date: 20240824
  Transmission Date: 20241017
  Serious: Yes (Life-Threatening)
  Sender: Public
  Company Number: None

PATIENT
  Age: 35 Year
  Sex: Female
  Weight: 65.25 kg

DRUGS (5)
  1. STRATTERA [Suspect]
     Active Substance: ATOMOXETINE HYDROCHLORIDE
     Indication: Attention deficit hyperactivity disorder
     Dates: start: 20240823, end: 20240823
  2. ZOLOFT [Concomitant]
     Active Substance: SERTRALINE HYDROCHLORIDE
  3. OMEPRAZOLE [Concomitant]
     Active Substance: OMEPRAZOLE
  4. IBUPROFEN [Concomitant]
     Active Substance: IBUPROFEN
  5. ADVIL [Concomitant]
     Active Substance: IBUPROFEN\IBUPROFEN SODIUM

REACTIONS (11)
  - Hyperhidrosis [None]
  - Palpitations [None]
  - Nausea [None]
  - Sneezing [None]
  - Vomiting [None]
  - Tremor [None]
  - Dizziness [None]
  - Chest discomfort [None]
  - Neck pain [None]
  - Muscle spasms [None]
  - Discomfort [None]

NARRATIVE: CASE EVENT DATE: 20240823
